FAERS Safety Report 11158665 (Version 1)
Quarter: 2015Q2

REPORT INFORMATION
  Report Type: Spontaneous
  Country: US (occurrence: None)
  Receive Date: 20150514
  Receipt Date: 20150514
  Transmission Date: 20150821
  Serious: Yes (Death)
  Sender: FDA-Public Use
  Company Number: 2015010040

PATIENT
  Age: 36 Year
  Sex: Female

DRUGS (9)
  1. SKELETAL MUSCLE RELAXANT (SKELETAL MUSCLE RELAXANT) [Suspect]
     Active Substance: UNSPECIFIED INGREDIENT
  2. ZOLPIDEM (ZOLPIDEM) [Suspect]
     Active Substance: ZOLPIDEM TARTRATE
  3. ACETAMINOPHEN (ACETAMINOPHEN) [Suspect]
     Active Substance: ACETAMINOPHEN
  4. CYCLIC ANTIDEPRESSANT [Suspect]
     Active Substance: UNSPECIFIED INGREDIENT
  5. FLUOXETINE [Suspect]
     Active Substance: FLUOXETINE\FLUOXETINE HYDROCHLORIDE
  6. MEPROBAMATE (MEPROBAMATE) [Suspect]
     Active Substance: MEPROBAMATE
  7. TOPIRAMATE (TOPIRAMATE) [Suspect]
     Active Substance: TOPIRAMATE
  8. BUTALBITAL (BUTALBITAL) [Suspect]
     Active Substance: BUTALBITAL
  9. CLONAZEPAM (CLONAZEPAM) [Suspect]
     Active Substance: CLONAZEPAM

REACTIONS (1)
  - Completed suicide [None]

NARRATIVE: CASE EVENT DATE: 2013
